FAERS Safety Report 23782263 (Version 6)
Quarter: 2024Q4

REPORT INFORMATION
  Report Type: Report from Study
  Country: CN (occurrence: CN)
  Receive Date: 20240425
  Receipt Date: 20241223
  Transmission Date: 20250115
  Serious: Yes (Death, Other)
  Sender: IPSEN BIOPHARMACEUTICALS, INC.
  Company Number: CN-IPSEN Group, Research and Development-2024-06927

PATIENT
  Age: 84 Year
  Sex: Male
  Weight: 75 kg

DRUGS (5)
  1. LANREOTIDE ACETATE [Suspect]
     Active Substance: LANREOTIDE ACETATE
     Indication: Acromegaly
     Route: 058
     Dates: start: 20230718, end: 20240117
  2. JIAN PI SHENG XUE [Concomitant]
     Indication: Anaemia
     Dosage: 2 BAG, ONGOING
     Route: 048
     Dates: start: 202306
  3. NIFEDIPINE [Concomitant]
     Active Substance: NIFEDIPINE
     Indication: Hypertension
     Dosage: DELAYED-RELEASE TABLETS, ONGOING
     Route: 048
     Dates: start: 202306
  4. MEXILETINE HYDROCHLORIDE [Concomitant]
     Active Substance: MEXILETINE HYDROCHLORIDE
     Indication: Arrhythmia
     Dosage: ONGOING
     Route: 048
     Dates: start: 202306
  5. YANG XIN DING JI [Concomitant]
     Indication: Arrhythmia
     Dosage: 6 CAPSULES, ONGOING
     Route: 048
     Dates: start: 202306

REACTIONS (1)
  - Death [Fatal]

NARRATIVE: CASE EVENT DATE: 20240201
